FAERS Safety Report 5370070-5 (Version None)
Quarter: 2007Q2

REPORT INFORMATION
  Report Type: 
  Country: None (occurrence: None)
  Receive Date: 20070613
  Receipt Date: 20060809
  Transmission Date: 20071010
  Serious: Yes (Hospitalization)
  Sender: FDA-Public Use
  Company Number: 23100359

PATIENT
  Age: 78 Year
  Sex: Female

DRUGS (4)
  1. ARGATROBAN [Suspect]
     Indication: HEPARIN-INDUCED THROMBOCYTOPENIA
     Dosage: 3 MCG/KG/MIN CONT IV
     Route: 042
     Dates: start: 20060807
  2. DIGOXIN [Concomitant]
  3. FAMOTIDINE [Concomitant]
  4. METOPROLOL SUCCINATE [Concomitant]

REACTIONS (1)
  - COAGULATION TIME PROLONGED [None]
